FAERS Safety Report 8803117 (Version 1)
Quarter: 2012Q4

REPORT INFORMATION
  Report Type: 
  Country: TW (occurrence: TW)
  Receive Date: 20120924
  Receipt Date: 20120924
  Transmission Date: 20130627
  Serious: Yes (Death, Hospitalization, Other)
  Sender: FDA-Public Use
  Company Number: TW-JNJFOC-20120905128

PATIENT
  Age: 60 Year
  Sex: Female

DRUGS (2)
  1. INVEGA [Suspect]
     Indication: SCHIZOPHRENIA
     Dosage: at night
     Route: 048
     Dates: start: 20111223
  2. BENZHEXOL [Concomitant]
     Indication: PRODUCT USED FOR UNKNOWN INDICATION
     Route: 065

REACTIONS (10)
  - Hypotension [Fatal]
  - Shock [Unknown]
  - Fall [Unknown]
  - Rhabdomyolysis [Unknown]
  - Pneumonia [Unknown]
  - Disseminated intravascular coagulation [Unknown]
  - Neuroleptic malignant syndrome [Unknown]
  - Respiratory failure [Unknown]
  - Renal failure [Unknown]
  - Cardiomyopathy [Unknown]
